FAERS Safety Report 16886302 (Version 1)
Quarter: 2019Q4

REPORT INFORMATION
  Report Type: Report from Study
  Country: US (occurrence: US)
  Receive Date: 20191004
  Receipt Date: 20191004
  Transmission Date: 20200122
  Serious: Yes (Death)
  Sender: FDA-Public Use
  Company Number: US-ASTRAZENECA-2019SF39196

PATIENT
  Age: 23789 Day
  Sex: Male
  Weight: 85.3 kg

DRUGS (8)
  1. TAGRISSO [Suspect]
     Active Substance: OSIMERTINIB
     Indication: NON-SMALL CELL LUNG CANCER
     Route: 048
     Dates: start: 20160224
  2. ATORVASTATIN [Concomitant]
     Active Substance: ATORVASTATIN
  3. CODEINE-GUAIFENESIN [Concomitant]
     Active Substance: CODEINE PHOSPHATE\GUAIFENESIN
  4. ENOXAPARIN [Concomitant]
     Active Substance: ENOXAPARIN
  5. DEXAMETHASONE. [Concomitant]
     Active Substance: DEXAMETHASONE
  6. ASPIRIN. [Concomitant]
     Active Substance: ASPIRIN
  7. MULTIVITAMINS [Concomitant]
     Active Substance: VITAMINS
  8. SAVAYSA [Concomitant]
     Active Substance: EDOXABAN TOSYLATE

REACTIONS (1)
  - Death [Fatal]

NARRATIVE: CASE EVENT DATE: 20190928
